FAERS Safety Report 10510410 (Version 2)
Quarter: 2014Q4

REPORT INFORMATION
  Report Type: Spontaneous
  Country: BR (occurrence: BR)
  Receive Date: 20141010
  Receipt Date: 20141015
  Transmission Date: 20150528
  Serious: Yes (Death, Hospitalization)
  Sender: FDA-Public Use
  Company Number: BR-SA-2014SA135985

PATIENT
  Age: 49 Year
  Sex: Male

DRUGS (1)
  1. FABRAZYME [Suspect]
     Active Substance: AGALSIDASE BETA
     Indication: FABRY^S DISEASE
     Route: 041
     Dates: start: 20140925

REACTIONS (5)
  - Pyrexia [Unknown]
  - Pneumonia [Unknown]
  - Death [Fatal]
  - Pain [Unknown]
  - Cardiac failure [Unknown]

NARRATIVE: CASE EVENT DATE: 20140926
